FAERS Safety Report 8171705-4 (Version None)
Quarter: 2012Q1

REPORT INFORMATION
  Report Type: 
  Country: None (occurrence: None)
  Receive Date: 20120228
  Receipt Date: 20120217
  Transmission Date: 20120608
  Serious: Yes (Hospitalization)
  Sender: FDA-Public Use
  Company Number: US-BAYER-2011-124193

PATIENT
  Age: 27 Year
  Sex: Female
  Weight: 74.83 kg

DRUGS (8)
  1. AMOXICILLIN [Concomitant]
     Indication: UNEVALUABLE EVENT
     Dosage: UNK
     Dates: start: 20100401
  2. WARFARIN SODIUM [Concomitant]
     Dosage: UNK
     Dates: start: 20100303, end: 20100701
  3. DROSPIRENONE AND ETHINYL ESTRADIOL [Suspect]
     Indication: ORAL CONTRACEPTION
     Dosage: UNK
     Dates: start: 20090801, end: 20100501
  4. HYDROCODONE [Concomitant]
     Indication: PAIN
     Dosage: UNK
     Dates: start: 20100401
  5. ACCUTANE [Concomitant]
     Dosage: UNK
     Dates: start: 20091223, end: 20100208
  6. YASMIN [Suspect]
     Indication: ACNE
  7. DROSPIRENONE AND ETHINYL ESTRADIOL [Suspect]
     Indication: ACNE
  8. YASMIN [Suspect]
     Indication: ORAL CONTRACEPTION
     Dosage: UNK
     Dates: start: 20090801, end: 20100501

REACTIONS (4)
  - PULMONARY EMBOLISM [None]
  - DEEP VEIN THROMBOSIS [None]
  - CHEST PAIN [None]
  - DYSPNOEA [None]
